FAERS Safety Report 8970557 (Version 1)
Quarter: 2012Q4

REPORT INFORMATION
  Report Type: 
  Country: US (occurrence: US)
  Receive Date: 20121218
  Receipt Date: 20121218
  Transmission Date: 20130627
  Serious: No
  Sender: FDA-Public Use
  Company Number: US-BRISTOL-MYERS SQUIBB COMPANY-16505604

PATIENT
  Age: 65 Year
  Sex: Male

DRUGS (2)
  1. ABILIFY [Suspect]
     Indication: BIPOLAR DISORDER
     Dosage: Initially given 10mg then increased to 15mg,on 4Apr12 reduced to 10mg
  2. KLONOPIN [Suspect]
     Indication: ANXIETY
     Dosage: reduced to 1 mg twice daily

REACTIONS (2)
  - Sedation [Unknown]
  - Drooling [Unknown]
